FAERS Safety Report 24378376 (Version 6)
Quarter: 2024Q4

REPORT INFORMATION
  Report Type: Spontaneous
  Country: CA (occurrence: CA)
  Receive Date: 20240930
  Receipt Date: 20241221
  Transmission Date: 20250115
  Serious: Yes (Hospitalization, Other)
  Sender: CELLTRION
  Company Number: CA-PFIZER INC-PV202400020782

PATIENT

DRUGS (14)
  1. INFLECTRA [Suspect]
     Active Substance: INFLIXIMAB-DYYB
     Indication: Crohn^s disease
     Dosage: UNK
     Route: 042
  2. INFLECTRA [Suspect]
     Active Substance: INFLIXIMAB-DYYB
     Dosage: 400 MG, EVERY 2, 6 WEEKS, THEN EVERY 8 WEEKS, HOSPITAL START
     Route: 042
     Dates: start: 20170408, end: 20170718
  3. INFLECTRA [Suspect]
     Active Substance: INFLIXIMAB-DYYB
     Dosage: 600 MG, EVERY 6 WEEKS
     Route: 042
     Dates: start: 20170912, end: 202103
  4. INFLECTRA [Suspect]
     Active Substance: INFLIXIMAB-DYYB
     Dosage: 10 MG/KG, EVERY 6 WEEKS
     Route: 042
     Dates: start: 202104, end: 20211019
  5. INFLECTRA [Suspect]
     Active Substance: INFLIXIMAB-DYYB
     Dosage: 400 MG, EVERY 6 WEEKS
     Route: 042
     Dates: start: 20211215, end: 20220308
  6. INFLECTRA [Suspect]
     Active Substance: INFLIXIMAB-DYYB
     Dosage: 200 MG, SINGLE (STAT DOSE)
     Route: 042
     Dates: start: 20220419, end: 20220419
  7. INFLECTRA [Suspect]
     Active Substance: INFLIXIMAB-DYYB
     Dosage: 600 MG, EVERY 6 WEEKS
     Route: 042
     Dates: start: 20220530, end: 202212
  8. INFLECTRA [Suspect]
     Active Substance: INFLIXIMAB-DYYB
     Dosage: 800 MG, EVERY 6 WEEKS
     Route: 042
     Dates: start: 202302
  9. INFLECTRA [Suspect]
     Active Substance: INFLIXIMAB-DYYB
     Dosage: 800 MG, EVERY 6 WEEKS
     Route: 042
     Dates: start: 20240507, end: 20240507
  10. INFLECTRA [Suspect]
     Active Substance: INFLIXIMAB-DYYB
     Dosage: 800 MG, EVERY 6 WEEKS
     Route: 042
     Dates: start: 20240704
  11. INFLECTRA [Suspect]
     Active Substance: INFLIXIMAB-DYYB
     Dosage: UNK
  12. INFLECTRA [Suspect]
     Active Substance: INFLIXIMAB-DYYB
     Dosage: 800 MG, EVERY 6 WEEK
     Route: 042
     Dates: start: 20240705
  13. INFLECTRA [Suspect]
     Active Substance: INFLIXIMAB-DYYB
     Dosage: 800 MG, AFTER 14 WEEKS (EVERY 6 WEEK)
     Route: 042
     Dates: start: 20241011
  14. JARDIANCE [Concomitant]
     Active Substance: EMPAGLIFLOZIN
     Dosage: 25 MG

REACTIONS (3)
  - Anorectal operation [Recovering/Resolving]
  - Nasal congestion [Unknown]
  - Hypoglycaemia [Unknown]

NARRATIVE: CASE EVENT DATE: 20240205
